FAERS Safety Report 13443959 (Version 3)
Quarter: 2017Q4

REPORT INFORMATION
  Report Type: Spontaneous
  Country: FR (occurrence: FR)
  Receive Date: 20170414
  Receipt Date: 20171223
  Transmission Date: 20180320
  Serious: Yes (Other)
  Sender: FDA-Public Use
  Company Number: PHHY2017FR054449

PATIENT
  Age: 83 Year
  Sex: Female
  Weight: 74 kg

DRUGS (13)
  1. LASILIX [Concomitant]
     Active Substance: FUROSEMIDE
     Indication: CARDIAC FAILURE
  2. LERCAN [Concomitant]
     Active Substance: LERCANIDIPINE
     Indication: ATRIAL FIBRILLATION
     Dosage: 10 MG, UNK
     Route: 065
  3. LEVOTHYROX [Concomitant]
     Active Substance: LEVOTHYROXINE
     Indication: CARDIAC FAILURE
  4. LERCAN [Concomitant]
     Active Substance: LERCANIDIPINE
     Indication: CARDIAC FAILURE
  5. PREVISCAN (FLUINDIONE) [Concomitant]
     Active Substance: FLUINDIONE
     Indication: ATRIAL FIBRILLATION
     Dosage: 20 OT, UNK
     Route: 065
  6. HEMIGOXINE [Concomitant]
     Active Substance: DIGOXIN
     Indication: CARDIAC FAILURE
  7. LEVOTHYROX [Concomitant]
     Active Substance: LEVOTHYROXINE
     Indication: ATRIAL FIBRILLATION
     Dosage: 25 OT, UNK
     Route: 065
  8. ENTRESTO [Suspect]
     Active Substance: SACUBITRIL\VALSARTAN
     Indication: DYSPNOEA
     Dosage: 50 MG, BID
     Route: 048
     Dates: start: 20161212, end: 20170408
  9. LASILIX [Concomitant]
     Active Substance: FUROSEMIDE
     Indication: ATRIAL FIBRILLATION
     Dosage: 40 OT, QD
     Route: 065
  10. PREVISCAN (FLUINDIONE) [Concomitant]
     Active Substance: FLUINDIONE
     Indication: CARDIAC FAILURE
  11. KERLONE [Concomitant]
     Active Substance: BETAXOLOL HYDROCHLORIDE
     Indication: ATRIAL FIBRILLATION
     Dosage: 10 MG, UNK
     Route: 065
  12. KERLONE [Concomitant]
     Active Substance: BETAXOLOL HYDROCHLORIDE
     Indication: CARDIAC FAILURE
  13. HEMIGOXINE [Concomitant]
     Active Substance: DIGOXIN
     Indication: ATRIAL FIBRILLATION
     Dosage: 0.125 OT, UNK
     Route: 065

REACTIONS (6)
  - Delirium [Recovered/Resolved]
  - Aggression [Recovered/Resolved]
  - Impaired reasoning [Recovered/Resolved]
  - Hallucination [Recovered/Resolved]
  - Disorientation [Recovered/Resolved]
  - Confusional state [Recovered/Resolved]

NARRATIVE: CASE EVENT DATE: 201703
